FAERS Safety Report 6270035-5 (Version None)
Quarter: 2009Q3

REPORT INFORMATION
  Report Type: 
  Country: None (occurrence: None)
  Receive Date: 20090716
  Receipt Date: 20090706
  Transmission Date: 20100115
  Serious: Yes (Other)
  Sender: FDA-Public Use
  Company Number: US-BAYER-200925546NA

PATIENT
  Age: 36 Year
  Sex: Female

DRUGS (5)
  1. MIRENA [Suspect]
     Indication: CONTRACEPTION
     Dosage: CONTINUOUS
     Route: 015
     Dates: start: 20080701, end: 20090201
  2. LEVOTHYROXINE SODIUM [Concomitant]
  3. LEVOTHYROXINE SODIUM [Concomitant]
  4. NIFEDIPINE [Concomitant]
  5. AMITIZA [Concomitant]
     Indication: CONSTIPATION

REACTIONS (9)
  - AMENORRHOEA [None]
  - BACK PAIN [None]
  - BLOOD THYROID STIMULATING HORMONE DECREASED [None]
  - FATIGUE [None]
  - GAIT DISTURBANCE [None]
  - OVARIAN CYST [None]
  - ROAD TRAFFIC ACCIDENT [None]
  - SMEAR CERVIX ABNORMAL [None]
  - SOMNOLENCE [None]
